FAERS Safety Report 13716772 (Version 1)
Quarter: 2017Q3

REPORT INFORMATION
  Report Type: Spontaneous
  Country: US (occurrence: US)
  Receive Date: 20170705
  Receipt Date: 20170705
  Transmission Date: 20171127
  Serious: No
  Sender: FDA-Public Use
  Company Number: US-TEVA-753930ACC

PATIENT
  Age: 64 Year
  Sex: Female

DRUGS (2)
  1. BUPROPION EXTENDED RELEASE XL [Suspect]
     Active Substance: BUPROPION
     Dates: start: 201703
  2. BUPROPION EXTENDED RELEASE XL [Suspect]
     Active Substance: BUPROPION

REACTIONS (7)
  - Headache [Not Recovered/Not Resolved]
  - Product substitution issue [Unknown]
  - Depressed mood [Not Recovered/Not Resolved]
  - Insomnia [Not Recovered/Not Resolved]
  - Drug ineffective [Not Recovered/Not Resolved]
  - Anxiety [Not Recovered/Not Resolved]
  - Irritability [Recovered/Resolved]

NARRATIVE: CASE EVENT DATE: 201703
